FAERS Safety Report 24980615 (Version 1)
Quarter: 2025Q1

REPORT INFORMATION
  Report Type: Spontaneous
  Country: US (occurrence: None)
  Receive Date: 20250214
  Receipt Date: 20250214
  Transmission Date: 20250409
  Serious: No
  Sender: FDA-CTU
  Company Number: None

PATIENT
  Age: 0 Year
  Sex: Female
  Weight: 3.23 kg

DRUGS (7)
  1. PROTRIPTYLINE [Suspect]
     Active Substance: PROTRIPTYLINE
  2. maternal medication: protriptyline [Concomitant]
  3. maternal medication: topiramate [Concomitant]
  4. maternal medication: trazadone [Concomitant]
  5. maternal medication: Levothyroxine [Concomitant]
  6. maternal medication: hydroxyzine pamoate [Concomitant]
  7. maternal medication: Albuterol [Concomitant]

REACTIONS (3)
  - Pelvic kidney [None]
  - Renal hypoplasia [None]
  - Talipes [None]

NARRATIVE: CASE EVENT DATE: 20220307
